FAERS Safety Report 6958201-4 (Version None)
Quarter: 2010Q3

REPORT INFORMATION
  Report Type: 
  Country: None (occurrence: None)
  Receive Date: 20100831
  Receipt Date: 20100823
  Transmission Date: 20110219
  Serious: Yes (Hospitalization)
  Sender: FDA-Public Use
  Company Number: JP-KINGPHARMUSA00001-K201001072

PATIENT
  Age: 19 Day
  Sex: Female
  Weight: 0.774 kg

DRUGS (4)
  1. LEVOXYL [Suspect]
     Indication: HYPOTHYROIDISM
     Dosage: 8 MCG/KG, QD
  2. LEVOXYL [Suspect]
     Dosage: 6 MCG/KG, QD
  3. ERYTHROMYCIN [Concomitant]
     Indication: BRONCHOPULMONARY DYSPLASIA
  4. INDOMETHACIN [Concomitant]
     Indication: PATENT DUCTUS ARTERIOSUS

REACTIONS (7)
  - ADRENAL INSUFFICIENCY [None]
  - CIRCULATORY COLLAPSE [None]
  - HYPERKALAEMIA [None]
  - HYPONATRAEMIA [None]
  - HYPOTENSION [None]
  - INSPIRATORY CAPACITY DECREASED [None]
  - OLIGURIA [None]
